FAERS Safety Report 16428080 (Version 1)
Quarter: 2019Q2

REPORT INFORMATION
  Report Type: Spontaneous
  Country: FR (occurrence: FR)
  Receive Date: 20190613
  Receipt Date: 20190613
  Transmission Date: 20190711
  Serious: Yes (Hospitalization, Other)
  Sender: FDA-Public Use
  Company Number: FR-ELI_LILLY_AND_COMPANY-FR201906005714

PATIENT
  Age: 62 Year
  Sex: Female
  Weight: 105 kg

DRUGS (2)
  1. TALTZ [Suspect]
     Active Substance: IXEKIZUMAB
     Indication: PRODUCT USED FOR UNKNOWN INDICATION
     Dosage: UNK, UNKNOWN
     Route: 065
  2. TREMFYA [Suspect]
     Active Substance: GUSELKUMAB
     Indication: PSORIASIS
     Dosage: 100 MG, MONTHLY (1/M)
     Route: 058
     Dates: start: 20190423, end: 20190426

REACTIONS (2)
  - Myocardial infarction [Recovering/Resolving]
  - Escherichia pyelonephritis [Recovering/Resolving]

NARRATIVE: CASE EVENT DATE: 20190426
